FAERS Safety Report 7142257-2 (Version None)
Quarter: 2010Q4

REPORT INFORMATION
  Report Type: 
  Country: None (occurrence: None)
  Receive Date: 20101112
  Receipt Date: 20100723
  Transmission Date: 20110411
  Serious: No
  Sender: FDA-Public Use
  Company Number: 1000015357

PATIENT
  Age: 46 Year
  Sex: Female
  Weight: 105.2 kg

DRUGS (19)
  1. SAVELLA [Suspect]
     Indication: FIBROMYALGIA
     Dosage: ORAL, 25 MG (25 MG, 1 IN 1 D), ORAL
     Route: 048
     Dates: start: 20100709, end: 20100718
  2. SAVELLA [Suspect]
     Indication: FIBROMYALGIA
     Dosage: ORAL, 25 MG (25 MG, 1 IN 1 D), ORAL
     Route: 048
     Dates: start: 20100719
  3. CYMBALTA [Concomitant]
  4. HORMONE CREAM [Concomitant]
  5. WELLBUTRIN [Concomitant]
  6. BENADRYL [Concomitant]
  7. VESICARE [Concomitant]
  8. CENESTIN [Concomitant]
  9. SYNTHROID [Concomitant]
  10. PRAVASTATIN [Concomitant]
  11. ALDACTONE [Concomitant]
  12. STOOL SOFTENERS [Concomitant]
  13. SINGULAIR [Concomitant]
  14. SOMA [Concomitant]
  15. MOBIC [Concomitant]
  16. PERCOCET [Concomitant]
  17. CELAXIN [Concomitant]
  18. VITAMIN D [Concomitant]
  19. VITAMIN B-12 [Concomitant]

REACTIONS (10)
  - ANXIETY [None]
  - DIARRHOEA [None]
  - DIZZINESS [None]
  - FAECES DISCOLOURED [None]
  - NAUSEA [None]
  - PALLOR [None]
  - PANIC ATTACK [None]
  - TREMOR [None]
  - VOMITING [None]
  - WEIGHT DECREASED [None]
